FAERS Safety Report 10068144 (Version 3)
Quarter: 2014Q2

REPORT INFORMATION
  Report Type: Spontaneous
  Country: US (occurrence: US)
  Receive Date: 20140409
  Receipt Date: 20140528
  Transmission Date: 20141212
  Serious: No
  Sender: FDA-Public Use
  Company Number: US-PFIZER INC-2014094739

PATIENT
  Age: 67 Year
  Sex: Male

DRUGS (6)
  1. INLYTA [Suspect]
     Indication: RENAL CANCER
     Dosage: UNK
     Dates: start: 20140225
  2. INLYTA [Suspect]
     Dosage: UNK
     Dates: start: 20140317
  3. POTASSIUM CHLORIDE [Concomitant]
     Dosage: UNK
  4. ASPIRIN [Concomitant]
     Dosage: UNK
  5. LOMOTIL [Concomitant]
     Dosage: UNK
  6. FLOMOX [Concomitant]

REACTIONS (7)
  - Abdominal pain [Unknown]
  - Constipation [Unknown]
  - Flatulence [Unknown]
  - Fatigue [Unknown]
  - Dizziness [Unknown]
  - Disease progression [Unknown]
  - Renal cancer [Unknown]
